FAERS Safety Report 12115010 (Version 6)
Quarter: 2017Q2

REPORT INFORMATION
  Report Type: Spontaneous
  Country: JP (occurrence: JP)
  Receive Date: 20160225
  Receipt Date: 20170630
  Transmission Date: 20170829
  Serious: Yes (Other)
  Sender: FDA-Public Use
  Company Number: JP-SA-2016SA035584

PATIENT
  Age: 78 Year
  Sex: Male
  Weight: 72.5 kg

DRUGS (11)
  1. OXALIPLATIN. [Suspect]
     Active Substance: OXALIPLATIN
     Indication: HER-2 POSITIVE GASTRIC CANCER
     Dosage: DRUG WAS ADMINISTERED ON DAY 1
     Route: 041
  2. ALLOPURINOL. [Concomitant]
     Active Substance: ALLOPURINOL
  3. FOSAPREPITANT [Concomitant]
     Active Substance: FOSAPREPITANT
     Indication: PROPHYLAXIS OF NAUSEA AND VOMITING
     Dosage: INFUSION
     Route: 041
  4. PALONOSETRON [Concomitant]
     Active Substance: PALONOSETRON
     Indication: PROPHYLAXIS OF NAUSEA AND VOMITING
     Route: 041
  5. MECOBALAMIN [Concomitant]
     Active Substance: METHYLCOBALAMIN
  6. LIMAPROST ALFADEX [Concomitant]
     Active Substance: LIMAPROST
     Indication: HYPERTENSION
     Route: 048
  7. DOMPERIDONE [Concomitant]
     Active Substance: DOMPERIDONE
     Route: 048
  8. TS-1 [Suspect]
     Active Substance: GIMERACIL\OTERACIL\TEGAFUR
     Indication: HER-2 POSITIVE GASTRIC CANCER
     Dosage: DAY 1 TO DAY 14 (AT A LOW DOSE OF 100 MG/BODY)
     Route: 048
  9. DEXAMETHASONE. [Concomitant]
     Active Substance: DEXAMETHASONE
     Indication: PROPHYLAXIS OF NAUSEA AND VOMITING
     Dosage: INFUSION
     Route: 041
  10. PERINDOPRIL [Suspect]
     Active Substance: PERINDOPRIL
     Indication: HYPERTENSION
     Route: 048
  11. SPIRONOLACTONE. [Suspect]
     Active Substance: SPIRONOLACTONE
     Indication: HYPERTENSION
     Route: 048

REACTIONS (8)
  - Renin increased [Unknown]
  - Urine sodium increased [Recovered/Resolved]
  - Depressed level of consciousness [Unknown]
  - Inappropriate antidiuretic hormone secretion [Recovered/Resolved]
  - Hiccups [Recovered/Resolved]
  - Hyponatraemia [Recovered/Resolved]
  - Nausea [Recovered/Resolved]
  - Blood antidiuretic hormone increased [Recovered/Resolved]
